FAERS Safety Report 15504548 (Version 1)
Quarter: 2018Q4

REPORT INFORMATION
  Report Type: Spontaneous
  Country: GR (occurrence: GR)
  Receive Date: 20181016
  Receipt Date: 20181016
  Transmission Date: 20190205
  Serious: Yes (Hospitalization, Other)
  Sender: FDA-Public Use
  Company Number: GR-SA-2018SA273989

PATIENT
  Age: 76 Year
  Sex: Male

DRUGS (9)
  1. ACETYLSALICYLIC ACID [Suspect]
     Active Substance: ASPIRIN
     Indication: ATRIAL FIBRILLATION
     Dosage: 100 MG
     Route: 065
  2. CLOPIDOGREL BISULFATE. [Suspect]
     Active Substance: CLOPIDOGREL BISULFATE
     Indication: MYOCARDIAL INFARCTION
  3. ACETYLSALICYLIC ACID [Suspect]
     Active Substance: ASPIRIN
     Indication: HYPERTENSION
  4. ACETYLSALICYLIC ACID [Suspect]
     Active Substance: ASPIRIN
     Indication: MYOCARDIAL INFARCTION
  5. CLOPIDOGREL BISULFATE. [Suspect]
     Active Substance: CLOPIDOGREL BISULFATE
     Indication: HYPERTENSION
  6. WARFARIN SODIUM. [Suspect]
     Active Substance: WARFARIN SODIUM
     Indication: ATRIAL FIBRILLATION
     Dosage: 2 MG, QD
  7. CLOPIDOGREL BISULFATE. [Suspect]
     Active Substance: CLOPIDOGREL BISULFATE
     Indication: ATRIAL FIBRILLATION
     Dosage: 75 MG
     Route: 065
  8. WARFARIN SODIUM. [Suspect]
     Active Substance: WARFARIN SODIUM
     Indication: MYOCARDIAL INFARCTION
  9. WARFARIN SODIUM. [Suspect]
     Active Substance: WARFARIN SODIUM
     Indication: HYPERTENSION

REACTIONS (24)
  - Pyrexia [Recovered/Resolved]
  - Chronic kidney disease [Recovered/Resolved]
  - Right ventricular diastolic collapse [Recovered/Resolved]
  - Ejection fraction decreased [Recovered/Resolved]
  - Shock haemorrhagic [Recovered/Resolved]
  - Melaena [Recovered/Resolved]
  - Condition aggravated [Recovered/Resolved]
  - Cardiac tamponade [Recovered/Resolved]
  - Chest pain [Recovered/Resolved]
  - Sinus tachycardia [Recovered/Resolved]
  - Anaemia [Recovered/Resolved]
  - Dressler^s syndrome [Recovered/Resolved]
  - Blood pressure systolic decreased [Recovering/Resolving]
  - Gastrointestinal haemorrhage [Recovered/Resolved]
  - Electrocardiogram Q wave abnormal [Recovered/Resolved]
  - Aneurysm [Recovered/Resolved]
  - Tachycardia [Recovered/Resolved]
  - International normalised ratio increased [Recovered/Resolved]
  - Shock [Recovered/Resolved]
  - Heart sounds abnormal [Recovering/Resolving]
  - Hypotension [Recovered/Resolved]
  - Anuria [Recovered/Resolved]
  - Jugular vein distension [Recovering/Resolving]
  - Blood fibrinogen decreased [Recovered/Resolved]
